FAERS Safety Report 4588269-4 (Version None)
Quarter: 2005Q1

REPORT INFORMATION
  Report Type: 
  Country: None (occurrence: None)
  Receive Date: 20050216
  Receipt Date: 20050202
  Transmission Date: 20050727
  Serious: No
  Sender: FDA-Public Use
  Company Number: 2004GB03075

PATIENT
  Age: 55 Year
  Sex: Female
  Weight: 76.4 kg

DRUGS (6)
  1. ZOLADEX [Suspect]
     Indication: UTERINE LEIOMYOMA
     Dosage: 3.6 MG MONTH SQ
     Dates: start: 20041209
  2. AMLODIPINE [Concomitant]
  3. ATORVASTATIN [Concomitant]
  4. ETODOLAC MR [Concomitant]
  5. LOSARTAN POTASSIUM [Concomitant]
  6. THYROXINE [Concomitant]

REACTIONS (2)
  - CHOKING SENSATION [None]
  - COUGH [None]
